FAERS Safety Report 22366532 (Version 1)
Quarter: 2023Q2

REPORT INFORMATION
  Report Type: Report from Study
  Country: CN (occurrence: CN)
  Receive Date: 20230525
  Receipt Date: 20230525
  Transmission Date: 20230721
  Serious: Yes (Hospitalization)
  Sender: FDA-Public Use
  Company Number: CN-TAKEDA-2023TUS051133

PATIENT
  Age: 65 Year
  Sex: Male
  Weight: 51.5 kg

DRUGS (16)
  1. VEDOLIZUMAB [Suspect]
     Active Substance: VEDOLIZUMAB
     Indication: Colitis ulcerative
     Dosage: 300 MILLIGRAM
     Route: 042
     Dates: start: 20230208
  2. PREDNISONE ACETATE [Suspect]
     Active Substance: PREDNISONE ACETATE
     Indication: Inflammatory bowel disease
     Dosage: 50 MILLIGRAM, QD
     Route: 048
     Dates: start: 20230210, end: 20230218
  3. PREDNISONE ACETATE [Suspect]
     Active Substance: PREDNISONE ACETATE
     Dosage: 50 MILLIGRAM, QD
     Route: 048
     Dates: start: 20230222, end: 2023
  4. PREDNISONE ACETATE [Suspect]
     Active Substance: PREDNISONE ACETATE
     Dosage: 45 MILLIGRAM, QD
     Route: 048
     Dates: start: 2023, end: 2023
  5. PREDNISONE ACETATE [Suspect]
     Active Substance: PREDNISONE ACETATE
     Dosage: 40 MILLIGRAM, QD
     Route: 048
     Dates: start: 2023, end: 2023
  6. PREDNISONE ACETATE [Suspect]
     Active Substance: PREDNISONE ACETATE
     Dosage: 35 MILLIGRAM, QD
     Route: 048
     Dates: start: 2023, end: 2023
  7. PREDNISONE ACETATE [Suspect]
     Active Substance: PREDNISONE ACETATE
     Dosage: 30 MILLIGRAM, QD
     Route: 048
     Dates: start: 2023, end: 2023
  8. PREDNISONE ACETATE [Suspect]
     Active Substance: PREDNISONE ACETATE
     Dosage: 25 MILLIGRAM, QD
     Route: 048
     Dates: start: 20230413, end: 20230426
  9. PREDNISONE ACETATE [Suspect]
     Active Substance: PREDNISONE ACETATE
     Dosage: 20 MILLIGRAM, QD
     Route: 048
     Dates: start: 20230427, end: 20230510
  10. PREDNISONE ACETATE [Suspect]
     Active Substance: PREDNISONE ACETATE
     Dosage: 15 MILLIGRAM, QD
     Route: 048
     Dates: start: 20230511, end: 20230523
  11. MESALAMINE [Concomitant]
     Active Substance: MESALAMINE
     Indication: Inflammatory bowel disease
     Dosage: 2 GRAM, BID
     Route: 048
     Dates: start: 20230130
  12. POTASSIUM CHLORIDE [Concomitant]
     Active Substance: POTASSIUM CHLORIDE
     Indication: Inflammatory bowel disease
     Dosage: 1 GRAM, BID
     Route: 048
     Dates: start: 20230130
  13. CALCIUM CARBONATE\CHOLECALCIFEROL [Concomitant]
     Active Substance: CALCIUM CARBONATE\CHOLECALCIFEROL
     Indication: Inflammatory bowel disease
     Dosage: 600 MILLIGRAM, QD
     Route: 048
     Dates: start: 20230202
  14. ERGOCALCIFEROL [Concomitant]
     Active Substance: ERGOCALCIFEROL
     Indication: Inflammatory bowel disease
     Dosage: 0.5 MICROGRAM, QD
     Route: 048
     Dates: start: 20230202
  15. RABEPRAZOLE SODIUM [Concomitant]
     Active Substance: RABEPRAZOLE SODIUM
     Indication: Inflammatory bowel disease
     Dosage: 10 MILLIGRAM, QD
     Route: 048
     Dates: start: 20230202
  16. ALFACALCIDOL [Concomitant]
     Active Substance: ALFACALCIDOL
     Indication: Inflammatory bowel disease
     Dosage: 0.5 MICROGRAM, QD
     Route: 048
     Dates: start: 202304

REACTIONS (2)
  - Inguinal hernia [Recovered/Resolved]
  - Swelling face [Not Recovered/Not Resolved]

NARRATIVE: CASE EVENT DATE: 20230408
